FAERS Safety Report 8305942-2 (Version None)
Quarter: 2012Q1

REPORT INFORMATION
  Report Type: 
  Country: None (occurrence: None)
  Receive Date: 20120326
  Receipt Date: 20120103
  Transmission Date: 20120608
  Serious: Yes (Other)
  Sender: FDA-Public Use
  Company Number: PHEH2012US000478

PATIENT
  Sex: Female

DRUGS (3)
  1. VIVELLE-DOT [Suspect]
     Dosage: 0.025 MG, TRANSDERMAL
     Route: 062
  2. ESTROGENS (NO INGREDIENTS/SUBSTANCES) PATCH [Suspect]
  3. ASPIRIN [Concomitant]

REACTIONS (6)
  - FEELING ABNORMAL [None]
  - FEAR [None]
  - MIGRAINE [None]
  - WEIGHT INCREASED [None]
  - PAIN IN EXTREMITY [None]
  - CEREBROVASCULAR ACCIDENT [None]
